FAERS Safety Report 7868293-6 (Version None)
Quarter: 2011Q4

REPORT INFORMATION
  Report Type: 
  Country: None (occurrence: None)
  Receive Date: 20111028
  Receipt Date: 20101220
  Transmission Date: 20120403
  Serious: No
  Sender: FDA-Public Use
  Company Number: US-AMGEN-USASP2010007938

PATIENT
  Age: 68 Year
  Sex: Female
  Weight: 120.18 kg

DRUGS (10)
  1. ENBREL [Suspect]
     Indication: PSORIATIC ARTHROPATHY
     Dosage: 50 MG, QWK
     Dates: start: 20091023
  2. PLAVIX [Concomitant]
     Dosage: UNK
  3. MYCOPHENOLATE MOFETIL (CELLCEPT) [Concomitant]
     Dosage: UNK
  4. AVAPRO [Concomitant]
     Dosage: UNK
  5. PREDNISONE [Concomitant]
     Dosage: 5 MG, UNK
  6. PROTONIX [Concomitant]
     Dosage: UNK
  7. ENBREL [Suspect]
     Indication: PRODUCT USED FOR UNKNOWN INDICATION
  8. LYRICA [Concomitant]
     Dosage: 50 MG, UNK
  9. ESTRADIOL [Concomitant]
     Dosage: UNK
  10. INSULIN [Concomitant]
     Dosage: UNK

REACTIONS (5)
  - FAECALOMA [None]
  - NAUSEA [None]
  - CONSTIPATION [None]
  - GASTROINTESTINAL PAIN [None]
  - MUSCLE SPASMS [None]
